FAERS Safety Report 23227421 (Version 1)
Quarter: 2023Q4

REPORT INFORMATION
  Report Type: Report from Study
  Country: US (occurrence: US)
  Receive Date: 20231124
  Receipt Date: 20231124
  Transmission Date: 20240109
  Serious: Yes (Other)
  Sender: FDA-Public Use
  Company Number: US-UCBSA-2023055443

PATIENT
  Age: 22 Year
  Sex: Female

DRUGS (2)
  1. NAYZILAM [Interacting]
     Active Substance: MIDAZOLAM
     Indication: Seizure
     Route: 045
  2. VALIUM [Interacting]
     Active Substance: DIAZEPAM
     Indication: Seizure
     Dosage: UNK
     Route: 048

REACTIONS (2)
  - Intellectual disability [Unknown]
  - Drug interaction [Unknown]
